FAERS Safety Report 8028640-1 (Version None)
Quarter: 2012Q1

REPORT INFORMATION
  Report Type: 
  Country: None (occurrence: None)
  Receive Date: 20120106
  Receipt Date: 20111227
  Transmission Date: 20120608
  Serious: Yes (Hospitalization)
  Sender: FDA-Public Use
  Company Number: US-ACTELION-A-US2011-58127

PATIENT

DRUGS (4)
  1. TRACLEER [Suspect]
     Dosage: UNK MG, UNK
     Route: 048
     Dates: start: 20111201
  2. TRACLEER [Suspect]
     Indication: PULMONARY ARTERIAL HYPERTENSION
     Dosage: UNK
     Route: 048
     Dates: start: 20060222, end: 20111101
  3. COUMADIN [Concomitant]
  4. CALCIUM CHANNEL BLOCKERS [Concomitant]

REACTIONS (7)
  - THROMBOSIS [None]
  - VOMITING [None]
  - PULMONARY ARTERIAL HYPERTENSION [None]
  - NAUSEA [None]
  - PYREXIA [None]
  - PELVIC FRACTURE [None]
  - YELLOW SKIN [None]
